FAERS Safety Report 7674015-4 (Version None)
Quarter: 2011Q3

REPORT INFORMATION
  Report Type: 
  Country: None (occurrence: None)
  Receive Date: 20110810
  Receipt Date: 20110801
  Transmission Date: 20111222
  Serious: Yes (Hospitalization)
  Sender: FDA-Public Use
  Company Number: FR-BRISTOL-MYERS SQUIBB COMPANY-15940547

PATIENT
  Age: 91 Year
  Sex: Female

DRUGS (10)
  1. RAMIPRIL [Concomitant]
  2. FERROUS SULFATE TAB [Concomitant]
  3. KREDEX [Concomitant]
  4. POTASSIUM CHLORIDE [Concomitant]
  5. LEVOTHYROXINE SODIUM [Concomitant]
  6. PANTOPRAZOLE [Concomitant]
  7. LASIX [Concomitant]
  8. DIGOXIN [Concomitant]
  9. COUMADIN [Suspect]
     Indication: ATRIAL FIBRILLATION
     Route: 048
     Dates: end: 20110603
  10. MONICOR [Concomitant]

REACTIONS (2)
  - FALL [None]
  - SUBDURAL HAEMATOMA [None]
